FAERS Safety Report 18466391 (Version 1)
Quarter: 2020Q4

REPORT INFORMATION
  Report Type: Spontaneous
  Country: US (occurrence: US)
  Receive Date: 20201105
  Receipt Date: 20201105
  Transmission Date: 20210114
  Serious: Yes (Hospitalization)
  Sender: FDA-Public Use
  Company Number: US-ROCHE-2705105

PATIENT
  Age: 77 Year
  Sex: Female
  Weight: 68.1 kg

DRUGS (1)
  1. CAPECITABINE. [Suspect]
     Active Substance: CAPECITABINE
     Indication: COLORECTAL CANCER
     Dosage: 3 PILLS TWICE A DAY
     Route: 048
     Dates: start: 202004, end: 20200528

REACTIONS (4)
  - Fistula [Not Recovered/Not Resolved]
  - Weight increased [Recovered/Resolved]
  - Pain [Recovering/Resolving]
  - Weight decreased [Not Recovered/Not Resolved]

NARRATIVE: CASE EVENT DATE: 20200910
